FAERS Safety Report 10446142 (Version 4)
Quarter: 2014Q4

REPORT INFORMATION
  Report Type: Spontaneous
  Country: JP (occurrence: JP)
  Receive Date: 20140910
  Receipt Date: 20141017
  Transmission Date: 20150528
  Serious: Yes (Life-Threatening, Hospitalization, Other)
  Sender: FDA-Public Use
  Company Number: JP-009507513-2008SP022592

PATIENT
  Age: 28 Day
  Sex: Male
  Weight: 2.8 kg

DRUGS (5)
  1. SANDOSTATIN [Concomitant]
     Active Substance: OCTREOTIDE ACETATE
     Indication: HYPOGLYCAEMIA
     Dosage: 3.6 MICROGRAM, QD
     Route: 058
     Dates: start: 20080711, end: 20080715
  2. DIAZOXIDE [Suspect]
     Active Substance: DIAZOXIDE
     Dosage: 30 MG, QD
     Route: 048
     Dates: start: 20080710, end: 20080804
  3. DIAZOXIDE [Suspect]
     Active Substance: DIAZOXIDE
     Indication: HYPOGLYCAEMIA
     Dosage: 20 MG, QD
     Route: 048
     Dates: start: 20080709, end: 20080709
  4. KAYTWO [Concomitant]
     Active Substance: UNSPECIFIED INGREDIENT
     Indication: VITAMIN K DEFICIENCY
     Dosage: 2 MG, QD
     Route: 042
     Dates: start: 20080707, end: 20080707
  5. LASIX [Concomitant]
     Active Substance: FUROSEMIDE
     Indication: OEDEMA
     Dosage: 2 MG, QD
     Route: 042
     Dates: start: 20080711, end: 20080711

REACTIONS (6)
  - Shock [Recovered/Resolved]
  - Hyponatraemia [Recovered/Resolved]
  - Anaemia [Recovered/Resolved]
  - Hyperkalaemia [Recovered/Resolved]
  - Generalised oedema [Recovered/Resolved]
  - Volume blood decreased [Recovered/Resolved]

NARRATIVE: CASE EVENT DATE: 20080804
